FAERS Safety Report 19919607 (Version 4)
Quarter: 2022Q1

REPORT INFORMATION
  Report Type: Report from Study
  Country: FR (occurrence: FR)
  Receive Date: 20211005
  Receipt Date: 20220106
  Transmission Date: 20220423
  Serious: Yes (Hospitalization, Disabling, Other)
  Sender: FDA-Public Use
  Company Number: FR-NOVARTISPH-NVSC2021FR219962

PATIENT
  Sex: Male
  Weight: 75 kg

DRUGS (8)
  1. CAPMATINIB [Suspect]
     Active Substance: CAPMATINIB
     Indication: Oedema
     Dosage: 400 MG, BID (TABLET)
     Route: 048
     Dates: start: 20210602, end: 20210830
  2. CAPMATINIB [Suspect]
     Active Substance: CAPMATINIB
     Indication: Lung neoplasm malignant
     Dosage: 600 MG, BID
     Route: 065
  3. CAPMATINIB [Suspect]
     Active Substance: CAPMATINIB
     Dosage: UNK
     Route: 065
     Dates: end: 20210923
  4. CAPMATINIB [Suspect]
     Active Substance: CAPMATINIB
     Dosage: 300 MG, BID (TABLET)
     Route: 048
     Dates: start: 20211008, end: 20211022
  5. CAPMATINIB [Suspect]
     Active Substance: CAPMATINIB
     Dosage: (2 DOSES OF 400 MG) QD
     Route: 048
     Dates: start: 20210602, end: 20210830
  6. CAPMATINIB [Suspect]
     Active Substance: CAPMATINIB
     Dosage: 2 DOSES OF 300 MG, QD
     Route: 048
     Dates: start: 20211008, end: 20211022
  7. HYDROCORTISONE [Concomitant]
     Active Substance: HYDROCORTISONE
     Indication: Product used for unknown indication
     Dosage: UNK
     Route: 065
  8. BACLOFEN [Concomitant]
     Active Substance: BACLOFEN
     Indication: Product used for unknown indication
     Dosage: UNK
     Route: 065

REACTIONS (3)
  - Generalised oedema [Recovering/Resolving]
  - Oedema [Recovering/Resolving]
  - Decreased appetite [Unknown]

NARRATIVE: CASE EVENT DATE: 20210701
